FAERS Safety Report 5584723-7 (Version None)
Quarter: 2008Q1

REPORT INFORMATION
  Report Type: 
  Country: None (occurrence: None)
  Receive Date: 20080108
  Receipt Date: 20071227
  Transmission Date: 20080703
  Serious: Yes (Other)
  Sender: FDA-Public Use
  Company Number: US-PFIZER INC-2007108833

PATIENT
  Sex: Female
  Weight: 67.727 kg

DRUGS (1)
  1. DILANTIN [Suspect]
     Indication: PETIT MAL EPILEPSY

REACTIONS (10)
  - CHEST DISCOMFORT [None]
  - DRY MOUTH [None]
  - DYSPHAGIA [None]
  - FATIGUE [None]
  - GASTROOESOPHAGEAL REFLUX DISEASE [None]
  - HIATUS HERNIA [None]
  - INTENTIONAL DRUG MISUSE [None]
  - NERVOUSNESS [None]
  - RESTLESSNESS [None]
  - SINUS DISORDER [None]
